FAERS Safety Report 16304775 (Version 1)
Quarter: 2019Q2

REPORT INFORMATION
  Report Type: Other
  Country: NL (occurrence: NL)
  Receive Date: 20190513
  Receipt Date: 20190513
  Transmission Date: 20190711
  Serious: Yes (Hospitalization, Other)
  Sender: FDA-Public Use
  Company Number: NL-INCYTE CORPORATION-2019IN004491

PATIENT

DRUGS (2)
  1. JAKAVI [Suspect]
     Active Substance: RUXOLITINIB
     Indication: PRODUCT USED FOR UNKNOWN INDICATION
     Dosage: 15 MILLIGRAM, 1 TABLET BID
     Route: 065
  2. ARANESP [Suspect]
     Active Substance: DARBEPOETIN ALFA
     Indication: MYELODYSPLASTIC SYNDROME
     Dosage: 150 UG, QW
     Route: 058

REACTIONS (9)
  - Epistaxis [Unknown]
  - Muscle spasms [Not Recovered/Not Resolved]
  - Haemoglobin abnormal [Unknown]
  - Oedema peripheral [Not Recovered/Not Resolved]
  - Abdominal pain upper [Unknown]
  - Anal haemorrhage [Unknown]
  - Transfusion [Unknown]
  - Haemoptysis [Recovered/Resolved]
  - Hypertension [Unknown]

NARRATIVE: CASE EVENT DATE: 2018
